FAERS Safety Report 25285722 (Version 3)
Quarter: 2025Q3

REPORT INFORMATION
  Report Type: Spontaneous
  Country: US (occurrence: US)
  Receive Date: 20250509
  Receipt Date: 20250803
  Transmission Date: 20251020
  Serious: Yes (Other)
  Sender: ALEXION PHARMACEUTICALS
  Company Number: US-AstraZeneca-CH-00864954A

PATIENT
  Sex: Female
  Weight: 90.718 kg

DRUGS (1)
  1. AIRSUPRA [Suspect]
     Active Substance: ALBUTEROL SULFATE\BUDESONIDE
     Route: 065

REACTIONS (4)
  - Visual impairment [Unknown]
  - Eye pain [Unknown]
  - Vision blurred [Unknown]
  - Ocular hyperaemia [Unknown]
